FAERS Safety Report 20206591 (Version 1)
Quarter: 2021Q4

REPORT INFORMATION
  Report Type: Spontaneous
  Country: FR (occurrence: FR)
  Receive Date: 20211220
  Receipt Date: 20211220
  Transmission Date: 20220303
  Serious: Yes (Other)
  Sender: FDA-Public Use
  Company Number: None

PATIENT
  Age: 18 Year
  Sex: Male

DRUGS (11)
  1. ALPRAZOLAM [Suspect]
     Active Substance: ALPRAZOLAM
     Indication: Product used for unknown indication
     Dosage: NON RENSEIGN?E
     Route: 048
     Dates: start: 2019
  2. KETAMINE [Suspect]
     Active Substance: KETAMINE
     Indication: Product used for unknown indication
     Dosage: NON RENSEIGN?E
     Route: 045
     Dates: start: 2019
  3. MIDOMAFETAMINE [Suspect]
     Active Substance: MIDOMAFETAMINE
     Indication: Product used for unknown indication
     Dosage: NON RENSEIGN?E
     Route: 055
     Dates: start: 2018
  4. MIDOMAFETAMINE [Suspect]
     Active Substance: MIDOMAFETAMINE
     Dosage: NON RENSEIGN?E
     Route: 048
     Dates: start: 2018, end: 2018
  5. MIDOMAFETAMINE [Suspect]
     Active Substance: MIDOMAFETAMINE
     Dosage: NON RENSEIGN?E
     Route: 045
     Dates: start: 2018
  6. OXAZEPAM [Suspect]
     Active Substance: OXAZEPAM
     Indication: Product used for unknown indication
     Dosage: NON RENSEIGN?E
     Route: 048
     Dates: start: 2019
  7. NITROUS OXIDE [Suspect]
     Active Substance: NITROUS OXIDE
     Indication: Product used for unknown indication
     Dosage: NON RENSEIGN?E
     Route: 055
     Dates: start: 2018, end: 2018
  8. ALCOHOL [Suspect]
     Active Substance: ALCOHOL
     Indication: Product used for unknown indication
     Dosage: 30 VERRES PAR SEMAINE
     Route: 048
     Dates: start: 2017
  9. AMPHETAMINE [Suspect]
     Active Substance: AMPHETAMINE
     Indication: Product used for unknown indication
     Dosage: NON RENSEIGN?E
     Route: 045
     Dates: start: 2018, end: 2018
  10. AMPHETAMINE [Suspect]
     Active Substance: AMPHETAMINE
     Dosage: NON RENSEIGN?E
     Route: 055
     Dates: start: 2018, end: 2018
  11. COCAINE [Suspect]
     Active Substance: COCAINE
     Indication: Product used for unknown indication
     Dosage: NON RENSEIGN?E
     Route: 045
     Dates: start: 2019

REACTIONS (7)
  - Drug abuse [Not Recovered/Not Resolved]
  - Euphoric mood [Recovered/Resolved]
  - Feeling of relaxation [Recovered/Resolved]
  - Memory impairment [Recovered/Resolved]
  - Psychiatric symptom [Recovered/Resolved]
  - Balance disorder [Recovered/Resolved]
  - Derealisation [Recovered/Resolved]

NARRATIVE: CASE EVENT DATE: 20180101
